FAERS Safety Report 15036291 (Version 2)
Quarter: 2018Q3

REPORT INFORMATION
  Report Type: Spontaneous
  Country: MX (occurrence: MX)
  Receive Date: 20180620
  Receipt Date: 20180704
  Transmission Date: 20181010
  Serious: Yes (Other)
  Sender: FDA-Public Use
  Company Number: MX-TEVA-2018-MX-909382

PATIENT
  Age: 12 Year
  Sex: Female

DRUGS (12)
  1. PREDNISONE. [Concomitant]
     Active Substance: PREDNISONE
     Indication: LUPUS NEPHRITIS
     Route: 065
  2. MYCOPHENOLATE MOFETIL. [Suspect]
     Active Substance: MYCOPHENOLATE MOFETIL
     Indication: LUPUS NEPHRITIS
     Dosage: 1 GRAM DAILY;
     Route: 065
  3. DABIGATRAN [Suspect]
     Active Substance: DABIGATRAN
     Indication: SUBCLAVIAN VEIN THROMBOSIS
     Route: 065
  4. METHYLPREDNISOLONE. [Concomitant]
     Active Substance: METHYLPREDNISOLONE
     Indication: LUPUS NEPHRITIS
     Dosage: THREE BOLUSES
     Route: 065
  5. MYCOPHENOLATE MOFETIL. [Suspect]
     Active Substance: MYCOPHENOLATE MOFETIL
     Indication: SYSTEMIC LUPUS ERYTHEMATOSUS
  6. CYCLOPHOSPHAMIDE. [Suspect]
     Active Substance: CYCLOPHOSPHAMIDE
     Indication: SYSTEMIC LUPUS ERYTHEMATOSUS
  7. METHYLPREDNISOLONE. [Concomitant]
     Active Substance: METHYLPREDNISOLONE
     Indication: SYSTEMIC LUPUS ERYTHEMATOSUS
  8. PREDNISONE. [Concomitant]
     Active Substance: PREDNISONE
     Indication: SYSTEMIC LUPUS ERYTHEMATOSUS
  9. RITUXIMAB. [Concomitant]
     Active Substance: RITUXIMAB
     Indication: ANTIPHOSPHOLIPID SYNDROME
     Route: 058
  10. CYCLOPHOSPHAMIDE. [Suspect]
     Active Substance: CYCLOPHOSPHAMIDE
     Indication: LUPUS NEPHRITIS
     Dosage: ONE BOLUS
     Route: 058
  11. ACETYLSALICYLIC ACID [Suspect]
     Active Substance: ASPIRIN
     Indication: SUBCLAVIAN VEIN THROMBOSIS
     Route: 065
  12. ENOXAPARIN [Concomitant]
     Active Substance: ENOXAPARIN
     Indication: SUBCLAVIAN VEIN THROMBOSIS
     Route: 065

REACTIONS (7)
  - Gastritis erosive [Unknown]
  - Pancreatitis [Unknown]
  - Volume blood decreased [Unknown]
  - Cystitis haemorrhagic [Unknown]
  - Haemoglobin decreased [Unknown]
  - Upper gastrointestinal haemorrhage [Recovering/Resolving]
  - Lower gastrointestinal haemorrhage [Recovering/Resolving]
